FAERS Safety Report 7267379-7 (Version None)
Quarter: 2011Q1

REPORT INFORMATION
  Report Type: 
  Country: None (occurrence: None)
  Receive Date: 20110201
  Receipt Date: 20100817
  Transmission Date: 20110831
  Serious: No
  Sender: FDA-Public Use
  Company Number: A0876331A

PATIENT
  Sex: Male

DRUGS (8)
  1. ARIXTRA [Suspect]
     Indication: PORTAL VEIN THROMBOSIS
     Route: 058
     Dates: start: 20100701
  2. LEXAPRO [Concomitant]
  3. FOLIC ACID [Concomitant]
  4. VITAMIN B-12 [Concomitant]
  5. LEVOTHYROXINE SODIUM [Concomitant]
  6. UNKNOWN DRUG [Concomitant]
  7. CALCIUM [Concomitant]
  8. CLONAZEPAM [Concomitant]

REACTIONS (1)
  - INJECTION SITE SWELLING [None]
